FAERS Safety Report 18595354 (Version 1)
Quarter: 2020Q4

REPORT INFORMATION
  Report Type: Spontaneous
  Country: FR (occurrence: FR)
  Receive Date: 20201209
  Receipt Date: 20201209
  Transmission Date: 20210114
  Serious: Yes (Hospitalization)
  Sender: FDA-Public Use
  Company Number: FR-TEVA-2020-FR-1855678

PATIENT
  Age: 54 Year
  Sex: Female
  Weight: 65 kg

DRUGS (11)
  1. GANFORT [Concomitant]
     Active Substance: BIMATOPROST\TIMOLOL
     Dosage: 2 GTT DAILY; 1 DROP / DAY IN EACH EYE
     Route: 047
  2. KARDEGIC [Concomitant]
     Active Substance: ASPIRIN DL-LYSINE
     Route: 048
  3. AMLODIPINE [Suspect]
     Active Substance: AMLODIPINE BESYLATE
     Indication: HYPERTENSION
     Route: 048
  4. GLICLAZIDE [Concomitant]
     Active Substance: GLICLAZIDE
     Dosage: 60 MG
     Route: 048
  5. NAPROXENE [Suspect]
     Active Substance: NAPROXEN
     Indication: BACK PAIN
     Route: 048
     Dates: start: 20200907, end: 20200911
  6. THIOCOLCHICOSIDE [Suspect]
     Active Substance: THIOCOLCHICOSIDE
     Indication: BACK PAIN
     Route: 048
     Dates: start: 20200907, end: 20200911
  7. METFORMINE [Concomitant]
     Active Substance: METFORMIN HYDROCHLORIDE
     Indication: TYPE 2 DIABETES MELLITUS
     Route: 048
  8. INDAPAMIDE. [Suspect]
     Active Substance: INDAPAMIDE
     Indication: HYPERTENSION
     Route: 048
  9. VALSARTAN. [Suspect]
     Active Substance: VALSARTAN
     Indication: HYPERTENSION
     Route: 048
  10. ATORVASTATINE [Concomitant]
     Active Substance: ATORVASTATIN
     Route: 048
  11. OZEMPIC [Concomitant]
     Active Substance: SEMAGLUTIDE
     Indication: TYPE 2 DIABETES MELLITUS
     Route: 058
     Dates: start: 202005, end: 20200911

REACTIONS (1)
  - Acute kidney injury [Recovered/Resolved]

NARRATIVE: CASE EVENT DATE: 20200911
